FAERS Safety Report 18156488 (Version 2)
Quarter: 2020Q4

REPORT INFORMATION
  Report Type: Spontaneous
  Country: US (occurrence: US)
  Receive Date: 20200817
  Receipt Date: 20201019
  Transmission Date: 20210113
  Serious: No
  Sender: FDA-Public Use
  Company Number: US-PFIZER INC-2020315849

PATIENT
  Age: 57 Year
  Sex: Female

DRUGS (2)
  1. XELJANZ XR [Suspect]
     Active Substance: TOFACITINIB CITRATE
     Indication: RHEUMATOID ARTHRITIS
     Dosage: 11 MG, DAILY
     Route: 048
     Dates: start: 2014, end: 202007
  2. XELJANZ XR [Suspect]
     Active Substance: TOFACITINIB CITRATE
     Dosage: 11 MG, DAILY
     Route: 058
     Dates: start: 2014

REACTIONS (6)
  - Pain [Unknown]
  - Off label use [Unknown]
  - Frustration tolerance decreased [Unknown]
  - Herpes zoster [Recovering/Resolving]
  - Arthralgia [Unknown]
  - Product use issue [Unknown]

NARRATIVE: CASE EVENT DATE: 2014
